FAERS Safety Report 10673733 (Version 1)
Quarter: 2014Q4

REPORT INFORMATION
  Report Type: Spontaneous
  Country: US (occurrence: None)
  Receive Date: 20141223
  Receipt Date: 20141223
  Transmission Date: 20150529
  Serious: No
  Sender: FDA-Public Use
  Company Number: None

PATIENT

DRUGS (3)
  1. SUTENT [Suspect]
     Active Substance: SUNITINIB MALATE
  2. TORISEL [Concomitant]
     Active Substance: TEMSIROLIMUS
  3. INLYTA [Concomitant]
     Active Substance: AXITINIB

REACTIONS (7)
  - Pulmonary oedema [None]
  - Malaise [None]
  - Blister [None]
  - Vomiting [None]
  - Pericardial effusion [None]
  - Drug ineffective [None]
  - Product quality issue [None]
